FAERS Safety Report 6965725-2 (Version None)
Quarter: 2010Q3

REPORT INFORMATION
  Report Type: 
  Country: None (occurrence: None)
  Receive Date: 20100903
  Receipt Date: 20100827
  Transmission Date: 20110219
  Serious: Yes (Other)
  Sender: FDA-Public Use
  Company Number: CM-ROCHE-724303

PATIENT
  Age: 60 Year
  Sex: Male

DRUGS (5)
  1. COPEGUS [Suspect]
     Indication: HEPATITIS C
     Dosage: DOSE:1000 MG/DAY, FREQUENCY: BD.
     Route: 065
  2. PEGASYS [Concomitant]
     Indication: HEPATITIS C
     Route: 065
  3. COZAAR [Concomitant]
  4. AMLODIPINE [Concomitant]
  5. ALLOPURINOL [Concomitant]

REACTIONS (1)
  - NEPHROPATHY [None]
